FAERS Safety Report 5004032-4 (Version None)
Quarter: 2006Q2

REPORT INFORMATION
  Report Type: 
  Country: None (occurrence: None)
  Receive Date: 20060517
  Receipt Date: 20060510
  Transmission Date: 20061013
  Serious: Yes (Hospitalization)
  Sender: FDA-Public Use
  Company Number: PHBS2006JP07129

PATIENT
  Age: 61 Year
  Sex: Male

DRUGS (4)
  1. RIBALL [Suspect]
     Dosage: 100 MG/DAY
     Route: 048
  2. PANALDINE [Suspect]
     Dosage: 100 MG/DAY
     Route: 048
     Dates: start: 20030917
  3. DORNER [Suspect]
     Dosage: 20 UG/DAY
     Route: 048
     Dates: start: 20060314
  4. DIOVAN [Suspect]
     Indication: HYPERTENSION
     Dosage: 40 MG/DAY
     Route: 048
     Dates: start: 20030917

REACTIONS (1)
  - INTERSTITIAL LUNG DISEASE [None]
